FAERS Safety Report 11086530 (Version 1)
Quarter: 2015Q2

REPORT INFORMATION
  Report Type: Spontaneous
  Country: US (occurrence: US)
  Receive Date: 20150504
  Receipt Date: 20150504
  Transmission Date: 20150821
  Serious: Yes (Other)
  Sender: FDA-Public Use
  Company Number: US-TEVA-543237USA

PATIENT
  Age: 12 Year
  Sex: Female

DRUGS (2)
  1. ZOLPIDEM [Suspect]
     Active Substance: ZOLPIDEM\ZOLPIDEM TARTRATE
     Route: 065
     Dates: start: 20150119, end: 20150120
  2. SUDAFED [Suspect]
     Active Substance: PSEUDOEPHEDRINE HYDROCHLORIDE
     Route: 065
     Dates: start: 20150119

REACTIONS (15)
  - Heart rate increased [Unknown]
  - Drug dispensing error [Unknown]
  - Wrong drug administered [Unknown]
  - Abnormal behaviour [Unknown]
  - Gastrointestinal disorder [Unknown]
  - Hallucination [Unknown]
  - Drug dispensing error [Unknown]
  - Indifference [Unknown]
  - Blood pressure increased [Unknown]
  - Abnormal behaviour [Unknown]
  - Headache [Unknown]
  - Dyspnoea [Unknown]
  - Aggression [Unknown]
  - Abdominal discomfort [Unknown]
  - Insomnia [Unknown]

NARRATIVE: CASE EVENT DATE: 20150119
